FAERS Safety Report 10162118 (Version 1)
Quarter: 2014Q2

REPORT INFORMATION
  Report Type: Spontaneous
  Country: US (occurrence: None)
  Receive Date: 20140507
  Receipt Date: 20140507
  Transmission Date: 20141212
  Serious: Yes (Other)
  Sender: FDA-Public Use
  Company Number: 001724826A

PATIENT
  Age: 66 Year
  Sex: Female

DRUGS (2)
  1. MB* ANTIOXIDANT DAY CREME SPF 20 [Suspect]
     Dosage: ONCE DERMAL
     Dates: start: 20140331
  2. MB* SKIN BRIGHTENING DECOLLETE+NECK TREATMENT SPF 15 [Suspect]
     Dosage: ONCE DERMAL
     Dates: start: 20140331

REACTIONS (2)
  - Swelling face [None]
  - Rash [None]
